FAERS Safety Report 23553091 (Version 2)
Quarter: 2024Q1

REPORT INFORMATION
  Report Type: Report from Study
  Country: RO (occurrence: RO)
  Receive Date: 20240222
  Receipt Date: 20240313
  Transmission Date: 20240410
  Serious: Yes (Hospitalization)
  Sender: FDA-Public Use
  Company Number: RO-AstraZeneca-2024A040340

PATIENT
  Age: 176 Day
  Sex: Female

DRUGS (1)
  1. SYNAGIS [Suspect]
     Active Substance: PALIVIZUMAB
     Indication: Premature baby
     Route: 030
     Dates: start: 20231004, end: 20231106

REACTIONS (1)
  - Bronchiolitis [Not Recovered/Not Resolved]

NARRATIVE: CASE EVENT DATE: 20231106
